FAERS Safety Report 5719362-8 (Version None)
Quarter: 2008Q2

REPORT INFORMATION
  Report Type: 
  Country: None (occurrence: None)
  Receive Date: 20080428
  Receipt Date: 20080421
  Transmission Date: 20081010
  Serious: Yes (Other)
  Sender: FDA-Public Use
  Company Number: PHHY2008BE05446

PATIENT
  Sex: Male

DRUGS (3)
  1. ZOMETA [Suspect]
     Indication: RENAL CANCER METASTATIC
     Dates: start: 20050101
  2. SUNITINIB MALATE [Concomitant]
     Dosage: 50 MG, UNK
  3. ANTIBIOTICS [Concomitant]

REACTIONS (3)
  - BONE DISORDER [None]
  - ERYTHEMA [None]
  - OSTEONECROSIS [None]
